FAERS Safety Report 7142708-3 (Version None)
Quarter: 2010Q4

REPORT INFORMATION
  Report Type: 
  Country: None (occurrence: None)
  Receive Date: 20101207
  Receipt Date: 20101129
  Transmission Date: 20110411
  Serious: Yes (Hospitalization)
  Sender: FDA-Public Use
  Company Number: ES-ABBOTT-10P-144-0688556-00

PATIENT
  Age: 56 Year
  Sex: Male

DRUGS (5)
  1. DEPAKENE [Suspect]
     Indication: CONVULSION
     Dosage: GASTRO-RESISTANT TABLET, 3 TIMES A DAY
     Route: 048
     Dates: start: 20100819, end: 20101024
  2. TEMOZOLOMIDE [Suspect]
     Indication: GLIOBLASTOMA MULTIFORME
     Dosage: EXTENDED RELEASE
     Route: 048
     Dates: start: 20090801, end: 20101004
  3. KEPPRA [Concomitant]
     Indication: PRODUCT USED FOR UNKNOWN INDICATION
  4. FORTECORTIN [Concomitant]
     Indication: PRODUCT USED FOR UNKNOWN INDICATION
  5. OMEPRAZOLE [Concomitant]
     Indication: PRODUCT USED FOR UNKNOWN INDICATION

REACTIONS (2)
  - CYTOLYTIC HEPATITIS [None]
  - HYPERBILIRUBINAEMIA [None]
